FAERS Safety Report 11350717 (Version 1)
Quarter: 2015Q3

REPORT INFORMATION
  Report Type: Spontaneous
  Country: US (occurrence: US)
  Receive Date: 20150807
  Receipt Date: 20150807
  Transmission Date: 20151125
  Serious: No
  Sender: FDA-Public Use
  Company Number: US-JNJFOC-20150614710

PATIENT
  Age: 66 Year
  Sex: Male
  Weight: 122.47 kg

DRUGS (3)
  1. VISINE A [Suspect]
     Active Substance: NAPHAZOLINE HYDROCHLORIDE\PHENIRAMINE MALEATE
     Indication: ANALGESIC THERAPY
     Dosage: A FEW TIMES, SEVERAL TIMES.
     Route: 047
  2. CALCIUM [Concomitant]
     Active Substance: CALCIUM
     Indication: ROUTINE HEALTH MAINTENANCE
     Route: 065
  3. MULTIVITAMINS [Concomitant]
     Active Substance: VITAMINS
     Indication: ROUTINE HEALTH MAINTENANCE
     Route: 065

REACTIONS (4)
  - Drug ineffective for unapproved indication [Unknown]
  - Eye pain [Recovered/Resolved]
  - Off label use [Unknown]
  - Ocular hyperaemia [Recovered/Resolved]
